FAERS Safety Report 8484251-5 (Version None)
Quarter: 2012Q3

REPORT INFORMATION
  Report Type: 
  Country: None (occurrence: None)
  Receive Date: 20120703
  Receipt Date: 20120625
  Transmission Date: 20120928
  Serious: Yes (Hospitalization)
  Sender: FDA-Public Use
  Company Number: US-JNJFOC-20120613162

PATIENT
  Sex: Male
  Weight: 31.5 kg

DRUGS (4)
  1. CERTOLIZUMAB [Concomitant]
  2. METHOTREXATE [Concomitant]
  3. INFLIXIMAB, RECOMBINANT [Suspect]
     Indication: CROHN'S DISEASE
     Route: 042
     Dates: start: 20101115
  4. INFLIXIMAB, RECOMBINANT [Suspect]
     Route: 042
     Dates: start: 20090925

REACTIONS (3)
  - IMPAIRED HEALING [None]
  - GROWTH RETARDATION [None]
  - DECREASED APPETITE [None]
